FAERS Safety Report 11771416 (Version 1)
Quarter: 2015Q4

REPORT INFORMATION
  Report Type: Spontaneous
  Country: US (occurrence: None)
  Receive Date: 20151123
  Receipt Date: 20151123
  Transmission Date: 20160304
  Serious: Yes (Life-Threatening, Hospitalization)
  Sender: FDA-Public Use
  Company Number: None

PATIENT
  Age: 57 Year
  Sex: Female
  Weight: 59.88 kg

DRUGS (17)
  1. OXYBUTYNIN CHLORIDE. [Concomitant]
     Active Substance: OXYBUTYNIN CHLORIDE
  2. LIDODERM [Concomitant]
     Active Substance: LIDOCAINE
  3. XARELTO [Concomitant]
     Active Substance: RIVAROXABAN
  4. B12 SUBLINGUAL (VITACOST) [Concomitant]
  5. BYSTOLIC (BETA BLOCKER) [Concomitant]
  6. BETAMETHASONE VAL LOTION [Concomitant]
  7. COQ10 (VITACOST) [Concomitant]
  8. MULTI VITAMIN [Concomitant]
     Active Substance: VITAMINS
  9. ZOLPIDEM TARTRATE TAB (GENERIC AMBIEN) [Concomitant]
  10. MAGNESIUM TAURATE [Concomitant]
  11. OSPHENA [Suspect]
     Active Substance: OSPEMIFENE
     Indication: ATROPHIC VULVOVAGINITIS
     Dosage: 1 PILL
     Route: 048
     Dates: start: 20140407, end: 20151101
  12. STEROID [Concomitant]
     Active Substance: UNSPECIFIED INGREDIENT
  13. FISH OIL OMEGA 3 (VITACOST) [Concomitant]
  14. RESTASIS OPTH VIAL [Concomitant]
  15. LIDOCAINE PATCH [Concomitant]
     Active Substance: LIDOCAINE
  16. CALCIUM CITRATE (CITRACAL PETITES) [Concomitant]
  17. POTASSIUM CITRATE (VITACOST) [Concomitant]

REACTIONS (2)
  - Deep vein thrombosis [None]
  - Pulmonary embolism [None]

NARRATIVE: CASE EVENT DATE: 20151102
